FAERS Safety Report 14137599 (Version 1)
Quarter: 2017Q4

REPORT INFORMATION
  Report Type: Spontaneous
  Country: RU (occurrence: RU)
  Receive Date: 20171027
  Receipt Date: 20171027
  Transmission Date: 20180321
  Serious: Yes (Other)
  Sender: FDA-Public Use
  Company Number: RU-TEVA-818860ISR

PATIENT
  Age: 2 Year
  Sex: Female
  Weight: 14 kg

DRUGS (1)
  1. SUMAMED [Suspect]
     Active Substance: AZITHROMYCIN ANHYDROUS
     Indication: RHEUMATOID ARTHRITIS
     Dosage: 140 MILLIGRAM DAILY;

REACTIONS (2)
  - Product use in unapproved indication [Unknown]
  - Rheumatoid arthritis [Recovered/Resolved]
